FAERS Safety Report 6292530-5 (Version None)
Quarter: 2009Q3

REPORT INFORMATION
  Report Type: 
  Country: None (occurrence: None)
  Receive Date: 20090731
  Receipt Date: 20090729
  Transmission Date: 20100115
  Serious: Yes (Hospitalization)
  Sender: FDA-Public Use
  Company Number: JP-B.I. PHARMACEUTICALS,INC./RIDGEFIELD-2008-BP-15597NB

PATIENT
  Sex: Female

DRUGS (5)
  1. MICARDIS [Suspect]
     Indication: HYPERTENSION
     Dosage: 40 MG
     Route: 048
     Dates: start: 20040502, end: 20080919
  2. ANCARON [Suspect]
     Indication: VENTRICULAR TACHYCARDIA
     Dosage: 200 MG
     Route: 048
     Dates: start: 20040502, end: 20080919
  3. MEVALOTIN [Concomitant]
     Indication: HYPERLIPIDAEMIA
     Dosage: 10 MG
     Route: 048
     Dates: start: 20041018, end: 20080917
  4. AMLODIPINE [Concomitant]
     Indication: HYPERTENSION
     Dosage: 5 MG
     Route: 048
     Dates: start: 20040502, end: 20080919
  5. GARLIC KUROZU [Concomitant]
     Route: 048
     Dates: end: 20080911

REACTIONS (1)
  - HEPATIC FUNCTION ABNORMAL [None]
